FAERS Safety Report 17168055 (Version 1)
Quarter: 2019Q4

REPORT INFORMATION
  Report Type: Spontaneous
  Country: US (occurrence: US)
  Receive Date: 20191125
  Receipt Date: 20191125
  Transmission Date: 20200122
  Serious: Yes (Hospitalization)
  Sender: FDA-Public Use
  Company Number: None

PATIENT
  Age: 51 Year
  Sex: Female
  Weight: 75.75 kg

DRUGS (1)
  1. OCRELIZUMAB 300MG X 2 [Suspect]
     Active Substance: OCRELIZUMAB
     Indication: MULTIPLE SCLEROSIS
     Dosage: ?          OTHER FREQUENCY:Q 6 MONTHS ;?
     Route: 042

REACTIONS (2)
  - Dyspnoea [None]
  - Fall [None]

NARRATIVE: CASE EVENT DATE: 20191117
